FAERS Safety Report 7363154-3 (Version None)
Quarter: 2011Q1

REPORT INFORMATION
  Report Type: 
  Country: None (occurrence: None)
  Receive Date: 20110321
  Receipt Date: 20100116
  Transmission Date: 20110831
  Serious: Yes (Death, Hospitalization, Other)
  Sender: FDA-Public Use
  Company Number: US-BAYER-201011563NA

PATIENT
  Sex: Male
  Weight: 80.726 kg

DRUGS (20)
  1. PRILOSEC [Concomitant]
     Route: 048
  2. AMIODARONE HCL [Concomitant]
     Dosage: UNK
     Route: 048
  3. SODIUM BICARBONATE [Concomitant]
     Dosage: 1 AMP TIMES 2
     Route: 042
     Dates: start: 20060927, end: 20060927
  4. FENTANYL [Concomitant]
     Dosage: 17 CC
     Route: 042
     Dates: start: 20060927, end: 20060927
  5. ASPIRIN [Concomitant]
     Route: 048
  6. DIGOXIN [Concomitant]
     Route: 048
  7. TRASYLOL [Suspect]
     Indication: CORONARY ARTERY BYPASS
     Dosage: 1 ML TEST DOSE, 200 ML LOADING DOSE, THEN 50 CC/HOUR
     Route: 042
     Dates: start: 20060927, end: 20060927
  8. HEPARIN SODIUM [Concomitant]
     Dosage: 25000 U,
     Route: 042
     Dates: start: 20060927, end: 20060927
  9. ANCEF [Concomitant]
     Dosage: UNK
     Route: 042
     Dates: start: 20060927
  10. ARGATROBAN [Concomitant]
     Dosage: UNK
     Dates: start: 20060906
  11. XANAX [Concomitant]
     Route: 048
  12. DOBUTAMINE [Concomitant]
     Dosage: 25 CC
     Route: 042
     Dates: start: 20060927
  13. MAGNESIUM [Concomitant]
     Dosage: 2 G, UNK
     Dates: start: 20060927, end: 20060927
  14. COREG [Concomitant]
     Route: 048
  15. VERSED [Concomitant]
     Dosage: 26 MG, UNK
     Route: 042
     Dates: start: 20060927, end: 20060927
  16. FRESH FROZEN PLASMA [Concomitant]
     Dosage: 2 U
     Dates: start: 20060927
  17. AMIODARONE HCL [Concomitant]
     Dosage: 150 MG BOLUS THEN 33 CC/HOUR
     Route: 042
     Dates: start: 20060927
  18. ISOVUE-128 [Concomitant]
     Dosage: 75 CC
     Dates: start: 20060919, end: 20060919
  19. COUMADIN [Concomitant]
     Dosage: DAILY DOSE 5 MG
     Route: 048
  20. PAVULON [Concomitant]
     Dosage: UNK
     Route: 042
     Dates: start: 20060927, end: 20060927

REACTIONS (15)
  - RENAL FAILURE [None]
  - DEPRESSION [None]
  - DEATH [None]
  - ORGAN FAILURE [None]
  - PAIN [None]
  - MYOCARDIAL INFARCTION [None]
  - CARDIAC DISORDER [None]
  - UNEVALUABLE EVENT [None]
  - FEAR [None]
  - RENAL IMPAIRMENT [None]
  - INJURY [None]
  - RENAL INJURY [None]
  - ANXIETY [None]
  - ANHEDONIA [None]
  - CEREBROVASCULAR ACCIDENT [None]
